FAERS Safety Report 8262407-4 (Version None)
Quarter: 2012Q2

REPORT INFORMATION
  Report Type: 
  Country: None (occurrence: None)
  Receive Date: 20120405
  Receipt Date: 20120403
  Transmission Date: 20120825
  Serious: Yes (Death)
  Sender: FDA-Public Use
  Company Number: US-ABBOTT-12P-163-0921334-00

PATIENT

DRUGS (1)
  1. DEPAKOTE [Suspect]
     Indication: MATERNAL EXPOSURE TIMING UNSPECIFIED
     Route: 064

REACTIONS (3)
  - ILL-DEFINED DISORDER [None]
  - MATERNAL DRUGS AFFECTING FOETUS [None]
  - FOETAL EXPOSURE DURING PREGNANCY [None]
